FAERS Safety Report 8261911-2 (Version None)
Quarter: 2012Q1

REPORT INFORMATION
  Report Type: 
  Country: None (occurrence: None)
  Receive Date: 20120327
  Receipt Date: 20090319
  Transmission Date: 20120608
  Serious: Yes (Other)
  Sender: FDA-Public Use
  Company Number: PHEH2009US02343

PATIENT
  Age: 41 Year
  Sex: Female

DRUGS (1)
  1. GLEEVEC [Suspect]
     Indication: GASTRIC CANCER
     Dosage: 300 MG, QD, ORAL
     Dates: start: 20081122

REACTIONS (4)
  - NEOPLASM PROGRESSION [None]
  - DRUG INEFFECTIVE [None]
  - COMPUTERISED TOMOGRAM [None]
  - GASTRIC CANCER [None]
